FAERS Safety Report 23782915 (Version 1)
Quarter: 2024Q2

REPORT INFORMATION
  Report Type: Spontaneous
  Country: ZA (occurrence: ZA)
  Receive Date: 20240425
  Receipt Date: 20240425
  Transmission Date: 20240715
  Serious: Yes (Hospitalization, Other)
  Sender: FDA-Public Use
  Company Number: ZA-RISINGPHARMA-ZA-2024RISLIT00098

PATIENT
  Sex: Male

DRUGS (2)
  1. RISPERIDONE [Suspect]
     Active Substance: RISPERIDONE
     Indication: Product used for unknown indication
     Route: 065
  2. AMLODIPINE [Suspect]
     Active Substance: AMLODIPINE BESYLATE
     Indication: Product used for unknown indication
     Route: 065

REACTIONS (5)
  - Shock [Recovered/Resolved]
  - Haemodynamic instability [Recovered/Resolved]
  - Blood lactic acid increased [Recovered/Resolved]
  - Hypotension [Not Recovered/Not Resolved]
  - Overdose [Unknown]
